FAERS Safety Report 7341708-8 (Version None)
Quarter: 2011Q1

REPORT INFORMATION
  Report Type: 
  Country: None (occurrence: None)
  Receive Date: 20110309
  Receipt Date: 20090706
  Transmission Date: 20110831
  Serious: Yes (Other)
  Sender: FDA-Public Use
  Company Number: US-BAYER-201039734NA

PATIENT
  Sex: Male
  Weight: 67.12 kg

DRUGS (7)
  1. TOPROL-XL [Concomitant]
     Dosage: UNK
     Dates: start: 20060501
  2. HEPARIN [Concomitant]
  3. APROTININ [Concomitant]
     Dosage: 200CC OVER 30MIN THEN 50CC/HR
     Route: 042
     Dates: start: 20060518, end: 20060518
  4. IBUPROFEN [Concomitant]
     Dosage: UNK UNK, PRN
  5. NAPROXEN [Concomitant]
     Dosage: UNK UNK, PRN
  6. AMIODARONE [Concomitant]
     Indication: ATRIAL FIBRILLATION
     Dosage: UNK
     Dates: start: 20060518
  7. TRASYLOL [Suspect]
     Indication: HEART VALVE REPLACEMENT
     Dosage: UNK
     Route: 042
     Dates: start: 20060518, end: 20060518

REACTIONS (13)
  - CEREBROVASCULAR ACCIDENT [None]
  - STRESS [None]
  - FEAR [None]
  - EMOTIONAL DISTRESS [None]
  - PAIN [None]
  - MULTI-ORGAN FAILURE [None]
  - RENAL FAILURE [None]
  - RENAL IMPAIRMENT [None]
  - RENAL INJURY [None]
  - UNEVALUABLE EVENT [None]
  - INJURY [None]
  - DEPRESSION [None]
  - ANXIETY [None]
